FAERS Safety Report 13051493 (Version 1)
Quarter: 2016Q4

REPORT INFORMATION
  Report Type: Spontaneous
  Country: US (occurrence: US)
  Receive Date: 20161221
  Receipt Date: 20161221
  Transmission Date: 20170207
  Serious: No
  Sender: FDA-Public Use
  Company Number: US-SHIRE-US201619156

PATIENT
  Age: 94 Year
  Sex: Female

DRUGS (1)
  1. LIALDA [Suspect]
     Active Substance: MESALAMINE
     Indication: COLITIS MICROSCOPIC
     Dosage: UNK, UNKNOWN; REPORTED AS 1.2GM TABLET
     Route: 048

REACTIONS (4)
  - Chromaturia [Unknown]
  - Product quality issue [Not Recovered/Not Resolved]
  - Product use issue [Unknown]
  - Unevaluable event [Unknown]
